FAERS Safety Report 5969315-X (Version None)
Quarter: 2008Q4

REPORT INFORMATION
  Report Type: 
  Country: None (occurrence: None)
  Receive Date: 20081126
  Receipt Date: 20081114
  Transmission Date: 20090506
  Serious: Yes (Death, Life-Threatening, Hospitalization, Other)
  Sender: FDA-Public Use
  Company Number: CA-PFIZER INC-2007105829

PATIENT
  Sex: Male
  Weight: 83.8 kg

DRUGS (10)
  1. VORICONAZOLE [Suspect]
     Indication: PROPHYLAXIS
     Route: 042
     Dates: start: 20071011, end: 20071012
  2. VORICONAZOLE [Suspect]
     Route: 042
     Dates: start: 20071012, end: 20071013
  3. VORICONAZOLE [Suspect]
     Route: 048
     Dates: start: 20071013, end: 20071019
  4. VORICONAZOLE [Suspect]
     Route: 042
     Dates: start: 20071020, end: 20071020
  5. VORICONAZOLE [Suspect]
     Route: 048
     Dates: start: 20071030, end: 20080103
  6. PREDNISONE TAB [Suspect]
  7. TACROLIMUS [Suspect]
     Route: 048
     Dates: start: 20071010, end: 20080223
  8. METRONIDAZOLE [Concomitant]
     Route: 048
     Dates: start: 20071215
  9. RABEPRAZOLE SODIUM [Concomitant]
     Route: 048
     Dates: start: 20071020
  10. LOPERAMIDE HYDROCHLORIDE [Concomitant]
     Route: 048
     Dates: start: 20071127, end: 20071215

REACTIONS (9)
  - BLOOD CREATININE INCREASED [None]
  - CHRONIC HEPATITIS [None]
  - DIARRHOEA [None]
  - HEPATIC CIRRHOSIS [None]
  - HEPATIC ENZYME ABNORMAL [None]
  - HEPATORENAL SYNDROME [None]
  - PANCYTOPENIA [None]
  - PERITONITIS BACTERIAL [None]
  - RENAL FAILURE ACUTE [None]
